FAERS Safety Report 5274945-7 (Version None)
Quarter: 2007Q1

REPORT INFORMATION
  Report Type: 
  Country: None (occurrence: None)
  Receive Date: 20061208
  Receipt Date: 20051228
  Transmission Date: 20070707
  Serious: No
  Sender: FDA-Public Use
  Company Number: 2005UW19459

PATIENT

DRUGS (1)
  1. CRESTOR [Suspect]

REACTIONS (1)
  - HEPATITIS [None]
